FAERS Safety Report 7376755-3 (Version None)
Quarter: 2011Q1

REPORT INFORMATION
  Report Type: 
  Country: None (occurrence: None)
  Receive Date: 20110325
  Receipt Date: 20110316
  Transmission Date: 20110831
  Serious: Yes (Death)
  Sender: FDA-Public Use
  Company Number: US-WATSON-2011-03397

PATIENT
  Age: 40 Year
  Sex: Female

DRUGS (3)
  1. FENTANYL-50 [Suspect]
     Dosage: UNK
     Route: 062
     Dates: start: 20090723
  2. FENTANYL-50 [Suspect]
     Indication: PAIN MANAGEMENT
     Dosage: EVERY 48 HOURS
     Route: 062
     Dates: start: 20090710
  3. FENTANYL-25 [Suspect]
     Indication: PAIN MANAGEMENT
     Dosage: EVERY 48 HOURS
     Route: 062
     Dates: start: 20090801

REACTIONS (2)
  - CARDIO-RESPIRATORY ARREST [None]
  - ACCIDENTAL OVERDOSE [None]
